FAERS Safety Report 5874422-6 (Version None)
Quarter: 2008Q3

REPORT INFORMATION
  Report Type: 
  Country: None (occurrence: None)
  Receive Date: 20080908
  Receipt Date: 20080827
  Transmission Date: 20090109
  Serious: Yes (Other)
  Sender: FDA-Public Use
  Company Number: US-PFIZER INC-2008063995

PATIENT
  Sex: Female
  Weight: 66.2 kg

DRUGS (21)
  1. CHANTIX [Suspect]
     Indication: SMOKING CESSATION THERAPY
     Route: 048
     Dates: start: 20080418, end: 20080612
  2. BETA BLOCKING AGENTS [Concomitant]
  3. PROCARDIA [Concomitant]
  4. KLONOPIN [Concomitant]
  5. METHADONE HCL [Concomitant]
  6. LIPITOR [Concomitant]
  7. CYMBALTA [Concomitant]
  8. VITAMIN TAB [Concomitant]
  9. XANAX [Concomitant]
     Dates: end: 20080213
  10. PREVACID [Concomitant]
  11. PROVIGIL [Concomitant]
  12. ESTRADIOL [Concomitant]
  13. MICARDIS [Concomitant]
     Dates: start: 20070917
  14. ALBUTEROL [Concomitant]
     Dates: start: 20071226
  15. ACTONEL [Concomitant]
  16. OTHER DERMATOLOGICAL PREPARATIONS [Concomitant]
     Dates: start: 20080313
  17. CARISOPRODOL [Concomitant]
     Dates: start: 20080507, end: 20080730
  18. HYDROCODONE BITARTRATE [Concomitant]
     Dates: start: 20080507, end: 20080730
  19. PROAIR HFA [Concomitant]
     Dates: start: 20080507, end: 20080730
  20. METOCLOPRAMIDE [Concomitant]
     Dates: start: 20080507, end: 20080609
  21. ALPRAZOLAM [Concomitant]
     Dates: start: 20080213

REACTIONS (2)
  - DEPRESSION [None]
  - HOMICIDAL IDEATION [None]
